FAERS Safety Report 4752053-9 (Version None)
Quarter: 2005Q3

REPORT INFORMATION
  Report Type: 
  Country: None (occurrence: None)
  Receive Date: 20050824
  Receipt Date: 20050513
  Transmission Date: 20060218
  Serious: Yes (Hospitalization, Disabling)
  Sender: FDA-Public Use
  Company Number: US-MERCK-0505USA01929

PATIENT
  Age: 55 Year
  Sex: Male
  Weight: 80 kg

DRUGS (13)
  1. ATIVAN [Concomitant]
     Route: 065
  2. PRAVACHOL [Concomitant]
     Route: 065
  3. ASPIRIN [Concomitant]
     Route: 048
  4. ZANTAC [Concomitant]
     Route: 048
  5. TRICOR [Concomitant]
     Route: 048
  6. WELCHOL [Concomitant]
     Route: 065
  7. VIOXX [Suspect]
     Indication: ARTHRITIS
     Route: 048
     Dates: start: 20010803, end: 20040930
  8. VIOXX [Suspect]
     Route: 048
  9. VIOXX [Suspect]
     Indication: LUMBAR RADICULOPATHY
     Route: 048
     Dates: start: 20010803, end: 20040930
  10. VIOXX [Suspect]
     Route: 048
  11. CELEBREX [Concomitant]
     Route: 065
     Dates: start: 20010601, end: 20010801
  12. VASOTEC RPD [Concomitant]
     Route: 048
  13. TOPROL-XL [Concomitant]
     Route: 048

REACTIONS (7)
  - ANXIETY [None]
  - CORONARY ARTERY DISEASE [None]
  - DEPRESSION [None]
  - DIZZINESS [None]
  - MYOCARDIAL INFARCTION [None]
  - PALPITATIONS [None]
  - VASCULITIS [None]
